FAERS Safety Report 8963914 (Version 1)
Quarter: 2012Q4

REPORT INFORMATION
  Report Type: 
  Country: ES (occurrence: ES)
  Receive Date: 20121214
  Receipt Date: 20121214
  Transmission Date: 20130627
  Serious: Yes (Other)
  Sender: FDA-Public Use
  Company Number: PHHY2012ES113487

PATIENT
  Sex: Male

DRUGS (1)
  1. DIGOXIN [Suspect]
     Dosage: Maternal dose:0.25 mg at 6 hrly interval for total of 2 mg, follwed by a daily dose 0.25mg at 8 hrly
     Route: 064

REACTIONS (3)
  - Tachycardia foetal [Unknown]
  - Premature baby [Unknown]
  - Foetal exposure during pregnancy [Unknown]
